FAERS Safety Report 25426167 (Version 2)
Quarter: 2025Q3

REPORT INFORMATION
  Report Type: Report from Study
  Country: BR (occurrence: BR)
  Receive Date: 20250612
  Receipt Date: 20250716
  Transmission Date: 20251020
  Serious: Yes (Other)
  Sender: NOVO NORDISK
  Company Number: BR-NOVOPROD-1449826

PATIENT
  Age: 57 Year
  Sex: Female
  Weight: 56 kg

DRUGS (2)
  1. TRANEXAMIC ACID [Concomitant]
     Active Substance: TRANEXAMIC ACID
     Indication: Glanzmann^s disease
     Dates: start: 2019
  2. NOVOSEVEN [Suspect]
     Active Substance: COAGULATION FACTOR VIIA RECOMBINANT HUMAN
     Indication: Glanzmann^s disease
     Dosage: 400 IU, TIW
     Dates: start: 2018

REACTIONS (6)
  - Diabetes mellitus [Recovering/Resolving]
  - Systemic lupus erythematosus [Recovering/Resolving]
  - Osteoporosis [Recovering/Resolving]
  - Tendonitis [Recovering/Resolving]
  - Epistaxis [Not Recovered/Not Resolved]
  - Physical examination abnormal [Unknown]

NARRATIVE: CASE EVENT DATE: 20190101
